FAERS Safety Report 18821513 (Version 2)
Quarter: 2021Q2

REPORT INFORMATION
  Report Type: Spontaneous
  Country: SE (occurrence: SE)
  Receive Date: 20210202
  Receipt Date: 20210419
  Transmission Date: 20210717
  Serious: Yes (Other)
  Sender: FDA-Public Use
  Company Number: SE-PFIZER INC-2021095619

PATIENT
  Sex: Female

DRUGS (1)
  1. CAVERJECT [Suspect]
     Active Substance: ALPROSTADIL
     Dosage: UNK

REACTIONS (4)
  - Genital burning sensation [Unknown]
  - Chlamydial infection [Unknown]
  - Exposure via partner [Unknown]
  - Genital rash [Unknown]
